FAERS Safety Report 4598572-X (Version None)
Quarter: 2005Q1

REPORT INFORMATION
  Report Type: 
  Country: None (occurrence: None)
  Receive Date: 20050304
  Receipt Date: 20050203
  Transmission Date: 20050727
  Serious: Yes (Hospitalization)
  Sender: FDA-Public Use
  Company Number: JP-ROCHE-394846

PATIENT
  Age: 19 Month
  Sex: Male

DRUGS (12)
  1. TAMIFLU [Suspect]
     Route: 048
     Dates: start: 20050121, end: 20050121
  2. TAMIFLU [Suspect]
     Route: 048
     Dates: start: 20050122, end: 20050123
  3. TAMIFLU [Suspect]
     Route: 048
     Dates: start: 20050124, end: 20050124
  4. MUCODYNE [Concomitant]
     Route: 048
     Dates: start: 20040515
  5. AMBROXOL HYDROCHLORIDE [Concomitant]
     Dosage: REPORTED AS PULSMARIN.
     Route: 048
     Dates: start: 20040515
  6. FLUNASE [Concomitant]
     Route: 045
     Dates: start: 20040515, end: 20050125
  7. FLUTICASONE PROPIONATE [Concomitant]
     Route: 055
     Dates: start: 20040615
  8. HOKUNALIN [Concomitant]
     Dosage: FORM REPORTED AS TAPE.
     Route: 061
     Dates: start: 20040815
  9. ONON [Concomitant]
     Route: 048
     Dates: start: 20041014
  10. ZADITEN [Concomitant]
     Route: 048
     Dates: start: 20041014
  11. THEO-DUR [Concomitant]
     Route: 048
     Dates: start: 20041014
  12. ERYTHROCIN [Concomitant]
     Route: 048
     Dates: start: 20041014

REACTIONS (2)
  - EPISTAXIS [None]
  - UPPER GASTROINTESTINAL HAEMORRHAGE [None]
